FAERS Safety Report 25424639 (Version 1)
Quarter: 2025Q2

REPORT INFORMATION
  Report Type: Spontaneous
  Country: US (occurrence: None)
  Receive Date: 20250611
  Receipt Date: 20250611
  Transmission Date: 20250717
  Serious: Yes (Hospitalization)
  Sender: FDA-CTU
  Company Number: None

PATIENT
  Age: 65 Year
  Sex: Female
  Weight: 66.15 kg

DRUGS (1)
  1. REPATHA [Suspect]
     Active Substance: EVOLOCUMAB

REACTIONS (7)
  - Inflammation [None]
  - Peripheral swelling [None]
  - Arthralgia [None]
  - Alopecia [None]
  - Haematoma [None]
  - Tendon disorder [None]
  - Visual impairment [None]

NARRATIVE: CASE EVENT DATE: 20250528
